FAERS Safety Report 5799934-5 (Version None)
Quarter: 2008Q3

REPORT INFORMATION
  Report Type: 
  Country: None (occurrence: None)
  Receive Date: 20080703
  Receipt Date: 20080626
  Transmission Date: 20090109
  Serious: Yes (Other)
  Sender: FDA-Public Use
  Company Number: GB-ASTRAZENECA-2008GB01207

PATIENT

DRUGS (16)
  1. SEROQUEL [Suspect]
     Dosage: 850 MG
     Route: 048
  2. MIXITARD [Concomitant]
     Dosage: 30U AT NIGHT AND 40U EVERY MORNING
  3. RAMIPRIL [Concomitant]
     Dosage: 5 MG
  4. LANSOPRAZOLE [Concomitant]
     Dosage: 30 MG
  5. METFORMIN HCL [Concomitant]
     Dosage: 850 MG
  6. SIMVASTATIN [Concomitant]
     Dosage: 40 MG
  7. CIMETIDINE [Concomitant]
     Dosage: 400 MG
  8. MOTOLUCOT [Concomitant]
  9. SERETIDE [Concomitant]
     Route: 055
  10. PROCYCLIDINE HYDROCHLORIDE 2MG TAB [Concomitant]
     Dosage: 5 MG
  11. HALOPERIDOL [Concomitant]
     Dosage: 10 MG
  12. LORAZEPAM [Concomitant]
  13. OXYGEN [Concomitant]
  14. GTN SPRAY [Concomitant]
  15. ACETYLCYSTEINE [Concomitant]
  16. DIAZEPAM [Concomitant]

REACTIONS (3)
  - ANGINA UNSTABLE [None]
  - CARDIAC FAILURE CONGESTIVE [None]
  - SINUS TACHYCARDIA [None]
